FAERS Safety Report 21873027 (Version 1)
Quarter: 2023Q1

REPORT INFORMATION
  Report Type: Spontaneous
  Country: US (occurrence: None)
  Receive Date: 20230115
  Receipt Date: 20230115
  Transmission Date: 20230418
  Serious: Yes (Hospitalization, Other)
  Sender: FDA-Public Use
  Company Number: None

PATIENT
  Age: 59 Year
  Sex: Female
  Weight: 61.2 kg

DRUGS (2)
  1. CRESTOR [Suspect]
     Active Substance: ROSUVASTATIN CALCIUM
  2. DILTIAZIM [Concomitant]

REACTIONS (4)
  - Feeling abnormal [None]
  - Palpitations [None]
  - Atrial fibrillation [None]
  - Blood thyroid stimulating hormone increased [None]

NARRATIVE: CASE EVENT DATE: 20221123
